FAERS Safety Report 9038072 (Version 1)
Quarter: 2013Q1

REPORT INFORMATION
  Report Type: Spontaneous
  Country: ES (occurrence: ES)
  Receive Date: 20130129
  Receipt Date: 20130129
  Transmission Date: 20140127
  Serious: Yes (Other)
  Sender: FDA-Public Use
  Company Number: ES-ABBOTT-13P-144-1034302-00

PATIENT
  Age: 28 Year
  Sex: Female
  Weight: 55.5 kg

DRUGS (3)
  1. HUMIRA [Suspect]
     Indication: CROHN^S DISEASE
     Dosage: INDUCTION DOSE: 160MG/80MG
     Route: 058
     Dates: start: 201206, end: 201206
  2. HUMIRA [Suspect]
     Route: 058
     Dates: start: 201206
  3. IMUREL [Concomitant]
     Indication: CROHN^S DISEASE
     Route: 048
     Dates: start: 20090211

REACTIONS (5)
  - Injection site oedema [Recovering/Resolving]
  - Injection site erythema [Recovering/Resolving]
  - Injection site pain [Recovering/Resolving]
  - Injection site reaction [Unknown]
  - Anaemia [Unknown]
